FAERS Safety Report 4549354-6 (Version None)
Quarter: 2005Q1

REPORT INFORMATION
  Report Type: 
  Country: None (occurrence: None)
  Receive Date: 20050111
  Receipt Date: 20050105
  Transmission Date: 20050727
  Serious: Yes (Other)
  Sender: FDA-Public Use
  Company Number: US-BRISTOL-MYERS SQUIBB COMPANY-12814299

PATIENT
  Age: 75 Year
  Sex: Female
  Weight: 90 kg

DRUGS (5)
  1. GLUCOPHAGE [Suspect]
     Indication: DIABETES MELLITUS
     Route: 048
  2. ASPIRIN [Concomitant]
  3. NEXIUM [Concomitant]
  4. COZAAR [Concomitant]
  5. AMARYL [Concomitant]

REACTIONS (4)
  - ARTERIAL HAEMORRHAGE [None]
  - BREAST PAIN [None]
  - CARDIAC STRESS TEST ABNORMAL [None]
  - CHEST PAIN [None]
